FAERS Safety Report 18225858 (Version 1)
Quarter: 2020Q3

REPORT INFORMATION
  Report Type: Spontaneous
  Country: US (occurrence: US)
  Receive Date: 20200903
  Receipt Date: 20200903
  Transmission Date: 20201103
  Serious: Yes (Hospitalization)
  Sender: FDA-Public Use
  Company Number: US-SUN PHARMACEUTICAL INDUSTRIES LTD-2019R1-219139

PATIENT
  Age: 44 Year
  Sex: Female

DRUGS (1)
  1. AMITRIPTYLINE [Suspect]
     Active Substance: AMITRIPTYLINE
     Indication: PRODUCT USED FOR UNKNOWN INDICATION
     Dosage: 4.5 GRAM
     Route: 065

REACTIONS (6)
  - Toxicity to various agents [Recovered/Resolved]
  - Somnolence [Unknown]
  - Electrocardiogram QRS complex prolonged [Unknown]
  - Mental status changes [Unknown]
  - Suicide attempt [Unknown]
  - Electrocardiogram QT prolonged [Not Recovered/Not Resolved]
